FAERS Safety Report 4776511-6 (Version None)
Quarter: 2005Q3

REPORT INFORMATION
  Report Type: 
  Country: None (occurrence: None)
  Receive Date: 20050915
  Receipt Date: 20050905
  Transmission Date: 20060218
  Serious: Yes (Hospitalization)
  Sender: FDA-Public Use
  Company Number: 2005123888

PATIENT
  Age: 68 Year
  Sex: Female

DRUGS (7)
  1. NEURONTIN [Suspect]
     Indication: EPILEPSY
     Dosage: 200 MG (100 MG, 2 IN 1 D), ORAL
     Route: 048
     Dates: start: 20050713, end: 20050821
  2. TRILEPTAL [Concomitant]
  3. PRIMASPAN (ACETYLSALICYLIC ACID) [Concomitant]
  4. PERSANTIN [Concomitant]
  5. ZOCOR [Concomitant]
  6. SYMBICORT (BUDESONIDE, FORMOTEROL FUMARATE) [Concomitant]
  7. PANTOPRAZOLE SODIUM [Concomitant]

REACTIONS (2)
  - ASTHMA [None]
  - URTICARIA [None]
